FAERS Safety Report 6695944-4 (Version None)
Quarter: 2010Q2

REPORT INFORMATION
  Report Type: 
  Country: None (occurrence: None)
  Receive Date: 20100422
  Receipt Date: 20100422
  Transmission Date: 20101027
  Serious: Yes (Hospitalization)
  Sender: FDA-Public Use
  Company Number: None

PATIENT
  Age: 59 Year
  Sex: Male

DRUGS (2)
  1. FLUOROURACIL [Suspect]
     Indication: COLON CANCER
     Dosage: IV
     Route: 042
  2. OXALIPLATIN [Suspect]
     Indication: COLON CANCER
     Dosage: 85 MG/M**2, IV
     Route: 042

REACTIONS (11)
  - BLOOD CREATININE INCREASED [None]
  - BLOOD PRESSURE INCREASED [None]
  - COLON NEOPLASM [None]
  - GASTROINTESTINAL HAEMORRHAGE [None]
  - HAEMODIALYSIS [None]
  - HYPERTENSION [None]
  - METASTASES TO LIVER [None]
  - NEOPLASM RECURRENCE [None]
  - RENAL FAILURE ACUTE [None]
  - REVERSIBLE POSTERIOR LEUKOENCEPHALOPATHY SYNDROME [None]
  - SUBARACHNOID HAEMORRHAGE [None]
